FAERS Safety Report 5173401-4 (Version None)
Quarter: 2006Q4

REPORT INFORMATION
  Report Type: 
  Country: None (occurrence: None)
  Receive Date: 20061206
  Receipt Date: 20061124
  Transmission Date: 20070319
  Serious: Yes (Other)
  Sender: FDA-Public Use
  Company Number: 2006126546

PATIENT
  Age: 69 Year
  Sex: Female
  Weight: 80.7403 kg

DRUGS (4)
  1. LYRICA [Suspect]
     Indication: ARTHRALGIA
     Dosage: 50 MG (50 MG, 1 IN 1 D)
  2. LYRICA [Suspect]
     Indication: PAIN IN EXTREMITY
     Dosage: 50 MG (50 MG, 1 IN 1 D)
  3. SYNTHROID [Concomitant]
  4. AMBIEN [Concomitant]

REACTIONS (10)
  - DIARRHOEA [None]
  - DRUG INEFFECTIVE [None]
  - FEELING HOT AND COLD [None]
  - HOT FLUSH [None]
  - HYPERHIDROSIS [None]
  - INSOMNIA [None]
  - MALAISE [None]
  - NAUSEA [None]
  - URINE OUTPUT DECREASED [None]
  - WEIGHT DECREASED [None]
